FAERS Safety Report 5009023-5 (Version None)
Quarter: 2006Q2

REPORT INFORMATION
  Report Type: 
  Country: None (occurrence: None)
  Receive Date: 20060518
  Receipt Date: 20060511
  Transmission Date: 20061013
  Serious: Yes (Other)
  Sender: FDA-Public Use
  Company Number: DEWYE616311MAY06

PATIENT
  Sex: Male

DRUGS (3)
  1. VENLAFAXINE HCL [Suspect]
     Dosage: 75 MG
     Route: 048
     Dates: end: 20060401
  2. DOXEPIN HCL [Suspect]
     Dosage: 50 MG
     Route: 048
     Dates: end: 20060401
  3. HEROIN (DIAMORPHINE, , 0) [Suspect]
     Route: 045

REACTIONS (1)
  - DRUG ABUSER [None]
